FAERS Safety Report 5449209-9 (Version None)
Quarter: 2007Q3

REPORT INFORMATION
  Report Type: 
  Country: None (occurrence: None)
  Receive Date: 20070911
  Receipt Date: 20070905
  Transmission Date: 20080115
  Serious: Yes (Hospitalization)
  Sender: FDA-Public Use
  Company Number: US-BOEHRINGER INGELHEIM PHARMACEUTICALS, INC.-2002-BP-02157BP

PATIENT
  Sex: Male
  Weight: 110 kg

DRUGS (15)
  1. MICARDIS [Suspect]
     Indication: PROPHYLAXIS
     Route: 048
     Dates: start: 20020101, end: 20020507
  2. MICARDIS [Suspect]
     Indication: CEREBROVASCULAR ACCIDENT PROPHYLAXIS
  3. RAMIPRIL [Suspect]
     Indication: PROPHYLAXIS
     Route: 048
     Dates: start: 20020101, end: 20020507
  4. RAMIPRIL [Suspect]
     Indication: CEREBROVASCULAR ACCIDENT PROPHYLAXIS
  5. NORVASC [Suspect]
     Dates: end: 20020101
  6. LASIX [Suspect]
     Route: 048
     Dates: end: 20020101
  7. ASPIRIN [Concomitant]
     Route: 048
  8. LOPRESSOR [Concomitant]
     Route: 048
  9. SYNTHROID [Concomitant]
     Route: 048
  10. LIPITOR [Concomitant]
     Route: 048
  11. VITAMIN CAP [Concomitant]
  12. FOLATE [Concomitant]
  13. K-DUR 10 [Concomitant]
  14. PRIMARIC [Concomitant]
  15. NEXIUM [Concomitant]

REACTIONS (1)
  - HYPOTENSION [None]
